FAERS Safety Report 10410777 (Version 1)
Quarter: 2014Q3

REPORT INFORMATION
  Report Type: Spontaneous
  Country: FR (occurrence: FR)
  Receive Date: 20140826
  Receipt Date: 20140826
  Transmission Date: 20150326
  Serious: Yes (Other)
  Sender: FDA-Public Use
  Company Number: FR-BAXTER-2014BAX049577

PATIENT
  Age: 72 Year
  Sex: Female

DRUGS (2)
  1. KIOVIG [Suspect]
     Active Substance: HUMAN IMMUNOGLOBULIN G
     Indication: ANTI-GAD ANTIBODY POSITIVE
  2. KIOVIG [Suspect]
     Active Substance: HUMAN IMMUNOGLOBULIN G
     Indication: CEREBELLAR ATAXIA
     Dosage: 2 G/KG FROM DAYS 2 TO 5 - TWO TREATMENTS SEPARATED BY A MONTH
     Route: 042

REACTIONS (1)
  - Condition aggravated [Recovered/Resolved]
